FAERS Safety Report 4601929-1 (Version None)
Quarter: 2005Q1

REPORT INFORMATION
  Report Type: 
  Country: None (occurrence: None)
  Receive Date: 20050201
  Receipt Date: 20040210
  Transmission Date: 20050727
  Serious: Yes (Hospitalization, Other)
  Sender: FDA-Public Use
  Company Number: 200412452BWH

PATIENT
  Age: 60 Year
  Sex: Female
  Weight: 74.3899 kg

DRUGS (3)
  1. AVELOX [Suspect]
     Indication: SINUSITIS
     Dosage: 400 MG, TOTAL DAILY, ORAL
     Route: 048
     Dates: start: 20040202
  2. HYZAAR [Concomitant]
  3. ZETIA [Concomitant]

REACTIONS (1)
  - GRAND MAL CONVULSION [None]
